FAERS Safety Report 7135165-4 (Version None)
Quarter: 2010Q4

REPORT INFORMATION
  Report Type: 
  Country: None (occurrence: None)
  Receive Date: 20101203
  Receipt Date: 20101112
  Transmission Date: 20110411
  Serious: No
  Sender: FDA-Public Use
  Company Number: US-PFIZER INC-2010147479

PATIENT
  Sex: Female
  Weight: 63.5 kg

DRUGS (10)
  1. LIPITOR [Suspect]
     Indication: BLOOD CHOLESTEROL INCREASED
     Dosage: 40 MG, DAILY
     Route: 048
     Dates: start: 20100903
  2. UNITHROID [Concomitant]
     Dosage: 75 MG, UNK
  3. PANTOPRAZOLE [Concomitant]
     Dosage: UNK
  4. CLONAZEPAM [Concomitant]
     Dosage: UNK
  5. ACETYLSALICYLIC ACID [Concomitant]
     Dosage: 81 MG, UNK
  6. ATENOLOL [Concomitant]
     Dosage: UNK
  7. FEMARA [Concomitant]
     Dosage: UNK
  8. SERTRALINE [Concomitant]
     Dosage: UNK
  9. ALPRAZOLAM [Concomitant]
     Dosage: UNK
  10. ARMODAFINIL [Concomitant]
     Dosage: UNK

REACTIONS (2)
  - INSOMNIA [None]
  - WEIGHT INCREASED [None]
